FAERS Safety Report 19093985 (Version 1)
Quarter: 2021Q2

REPORT INFORMATION
  Report Type: Report from Study
  Country: JP (occurrence: JP)
  Receive Date: 20210405
  Receipt Date: 20210405
  Transmission Date: 20210717
  Serious: Yes (Death, Other)
  Sender: FDA-Public Use
  Company Number: JP-TAKEDA-2021TUS021730

PATIENT
  Age: 40 Year
  Sex: Female
  Weight: 60 kg

DRUGS (1)
  1. PONATINIB [Suspect]
     Active Substance: PONATINIB
     Indication: CHRONIC MYELOID LEUKAEMIA TRANSFORMATION
     Dosage: 30 MILLIGRAM, QD
     Route: 048
     Dates: start: 20171117, end: 20180111

REACTIONS (1)
  - Chronic myeloid leukaemia transformation [Fatal]

NARRATIVE: CASE EVENT DATE: 20180111
